FAERS Safety Report 13265591 (Version 1)
Quarter: 2017Q1

REPORT INFORMATION
  Report Type: Report from Study
  Country: None (occurrence: BR)
  Receive Date: 20170223
  Receipt Date: 20170223
  Transmission Date: 20170428
  Serious: Yes (Hospitalization)
  Sender: FDA-Public Use
  Company Number: BR-ABBVIE-17K-020-1882843-00

PATIENT
  Age: 61 Year
  Sex: Female
  Weight: 100 kg

DRUGS (12)
  1. VITAMIN D [Concomitant]
     Active Substance: CHOLECALCIFEROL
     Indication: BONE DISORDER
     Route: 048
     Dates: start: 201609
  2. PARACETAMOL [Concomitant]
     Active Substance: ACETAMINOPHEN
     Indication: MUSCLE SPASMS
  3. HUMIRA [Suspect]
     Active Substance: ADALIMUMAB
     Route: 058
  4. PARACETAMOL [Concomitant]
     Active Substance: ACETAMINOPHEN
     Indication: PAIN
     Route: 048
  5. CONCARDIO [Concomitant]
     Active Substance: BISOPROLOL FUMARATE
     Indication: HYPERTENSION
     Route: 048
     Dates: start: 2015
  6. PIOGLIT [Concomitant]
     Indication: DIABETES MELLITUS
     Route: 048
     Dates: start: 2015
  7. TANDRILAX [Concomitant]
     Active Substance: ACETAMINOPHEN\CAFFEINE\CARISOPRODOL\DICLOFENAC SODIUM
     Indication: PAIN
     Route: 048
  8. BUSCOPAN [Concomitant]
     Active Substance: BUTYLSCOPOLAMINE BROMIDE
     Indication: PAIN
     Route: 048
  9. BUSCOPAN [Concomitant]
     Active Substance: BUTYLSCOPOLAMINE BROMIDE
     Indication: MUSCLE SPASMS
  10. HUMIRA [Suspect]
     Active Substance: ADALIMUMAB
     Indication: CROHN^S DISEASE
     Route: 058
     Dates: start: 20150601, end: 2016
  11. CONCARDIO [Concomitant]
     Active Substance: BISOPROLOL FUMARATE
     Indication: ARRHYTHMIA
  12. DORIL [Concomitant]
     Indication: BONE PAIN
     Route: 048

REACTIONS (13)
  - Crohn^s disease [Recovering/Resolving]
  - Contusion [Unknown]
  - Pruritus [Unknown]
  - Fall [Recovered/Resolved]
  - Immunodeficiency [Unknown]
  - Skin discolouration [Unknown]
  - Faeces discoloured [Recovering/Resolving]
  - Asthenia [Not Recovered/Not Resolved]
  - Feeding disorder [Unknown]
  - Gait disturbance [Recovered/Resolved]
  - Feeling abnormal [Unknown]
  - Muscular weakness [Recovered/Resolved]
  - Herpes zoster [Unknown]

NARRATIVE: CASE EVENT DATE: 201609
